FAERS Safety Report 6376520-X (Version None)
Quarter: 2009Q3

REPORT INFORMATION
  Report Type: 
  Country: None (occurrence: None)
  Receive Date: 20090925
  Receipt Date: 20090914
  Transmission Date: 20100115
  Serious: Yes (Other)
  Sender: FDA-Public Use
  Company Number: EG-PFIZER INC-2009269140

PATIENT
  Age: 48 Year

DRUGS (2)
  1. SILDENAFIL CITRATE [Suspect]
     Dosage: 25 MG, UNK
  2. SILDENAFIL CITRATE [Suspect]
     Dosage: 50 MG, UNK

REACTIONS (1)
  - OPTIC ISCHAEMIC NEUROPATHY [None]
